FAERS Safety Report 25219597 (Version 1)
Quarter: 2025Q2

REPORT INFORMATION
  Report Type: Spontaneous
  Country: GR (occurrence: GR)
  Receive Date: 20250421
  Receipt Date: 20250421
  Transmission Date: 20250716
  Serious: Yes (Other)
  Sender: ARGENX BVBA
  Company Number: GR-Medison-001213

PATIENT

DRUGS (1)
  1. VYVGART [Suspect]
     Active Substance: EFGARTIGIMOD ALFA-FCAB
     Indication: Myasthenia gravis
     Dosage: 10 MG/KG, Q4WEEKS (ONE INFUSION PER WEEK FOR 4 WEEKS)
     Route: 042

REACTIONS (1)
  - Low density lipoprotein increased [Recovered/Resolved]
